FAERS Safety Report 12507507 (Version 1)
Quarter: 2016Q2

REPORT INFORMATION
  Report Type: Spontaneous
  Country: US (occurrence: None)
  Receive Date: 20160628
  Receipt Date: 20160628
  Transmission Date: 20160815
  Serious: Yes (Hospitalization)
  Sender: FDA-Public Use
  Company Number: None

PATIENT
  Age: 19 Year
  Sex: Male
  Weight: 61 kg

DRUGS (1)
  1. IMODIUM [Suspect]
     Active Substance: LOPERAMIDE HYDROCHLORIDE
     Indication: SUBSTANCE ABUSE
     Route: 048

REACTIONS (3)
  - Drug abuse [None]
  - Small intestinal obstruction [None]
  - Unresponsive to stimuli [None]

NARRATIVE: CASE EVENT DATE: 20160623
